FAERS Safety Report 5823811-4 (Version None)
Quarter: 2008Q3

REPORT INFORMATION
  Report Type: 
  Country: None (occurrence: None)
  Receive Date: 20080725
  Receipt Date: 20080714
  Transmission Date: 20090109
  Serious: Yes (Death, Other)
  Sender: FDA-Public Use
  Company Number: GB-PFIZER INC-2008060111

PATIENT
  Age: 78 Year
  Sex: Male
  Weight: 87 kg

DRUGS (12)
  1. LYRICA [Suspect]
     Indication: HERPES ZOSTER
     Dosage: DAILY DOSE:1500MG
     Route: 048
  2. AMITRIPTYLINE HCL [Concomitant]
  3. BISACODYL [Concomitant]
  4. DAKTACORT [Concomitant]
     Route: 061
  5. DIAZEPAM [Concomitant]
  6. DICLOFENAC SODIUM [Concomitant]
  7. FLECAINIDE ACETATE [Concomitant]
  8. HYPROMELLOSE [Concomitant]
     Route: 047
  9. LACTULOSE [Concomitant]
     Route: 048
  10. NITRAZEPAM [Concomitant]
  11. ACETAMINOPHEN [Concomitant]
  12. TAMSULOSIN HCL [Concomitant]

REACTIONS (1)
  - LEFT VENTRICULAR FAILURE [None]
